FAERS Safety Report 22614221 (Version 4)
Quarter: 2024Q1

REPORT INFORMATION
  Report Type: Report from Study
  Country: US (occurrence: US)
  Receive Date: 20230619
  Receipt Date: 20240109
  Transmission Date: 20240410
  Serious: Yes (Hospitalization)
  Sender: FDA-Public Use
  Company Number: US-002147023-NVSC2023US135037

PATIENT
  Age: 64 Year
  Sex: Female

DRUGS (1)
  1. KESIMPTA [Suspect]
     Active Substance: OFATUMUMAB
     Indication: Product used for unknown indication
     Dosage: UNK
     Route: 065
     Dates: start: 2022

REACTIONS (12)
  - Fall [Unknown]
  - Head discomfort [Unknown]
  - Fatigue [Unknown]
  - COVID-19 [Unknown]
  - Weight increased [Unknown]
  - Alopecia [Unknown]
  - Gait disturbance [Unknown]
  - Pain of skin [Unknown]
  - Arthropathy [Unknown]
  - Poor quality sleep [Unknown]
  - Sensory loss [Unknown]
  - Urinary tract infection [Unknown]

NARRATIVE: CASE EVENT DATE: 20230527
